FAERS Safety Report 4907159-8 (Version None)
Quarter: 2006Q1

REPORT INFORMATION
  Report Type: 
  Country: None (occurrence: None)
  Receive Date: 20060206
  Receipt Date: 20060123
  Transmission Date: 20060701
  Serious: Yes (Hospitalization)
  Sender: FDA-Public Use
  Company Number: HQWYE493310NOV05

PATIENT
  Age: 68 Year
  Sex: Female

DRUGS (4)
  1. GEMTUZUMAB OZOGAMICIN (GEMTUZUMAB OZOGAMICIN, INJECTION) [Suspect]
     Indication: ACUTE MYELOID LEUKAEMIA
     Dosage: 10 MG 1X PER 1 DAY INTRAVENOUS
     Route: 042
     Dates: start: 20040706, end: 20040706
  2. GEMTUZUMAB OZOGAMICIN (GEMTUZUMAB OZOGAMICIN, INJECTION) [Suspect]
     Dosage: 15 MG 1X PER 1 DAY INTRAVENOUS
     Route: 042
     Dates: start: 20040720, end: 20040720
  3. LEVOTHYROXINE SODIUM [Concomitant]
  4. LANSOPRAZOLE [Concomitant]

REACTIONS (5)
  - BUDD-CHIARI SYNDROME [None]
  - DIARRHOEA [None]
  - FEBRILE NEUTROPENIA [None]
  - GASTROINTESTINAL HAEMORRHAGE [None]
  - RESPIRATORY TRACT INFECTION FUNGAL [None]
